FAERS Safety Report 24451755 (Version 1)
Quarter: 2024Q4

REPORT INFORMATION
  Report Type: Spontaneous
  Country: PL (occurrence: PL)
  Receive Date: 20241017
  Receipt Date: 20241017
  Transmission Date: 20250115
  Serious: Yes (Hospitalization)
  Sender: TEVA
  Company Number: None

PATIENT
  Age: 76 Year
  Sex: Male

DRUGS (15)
  1. TOLTERODINE [Suspect]
     Active Substance: TOLTERODINE
     Indication: Urinary incontinence
     Dosage: 0-1-0
     Route: 048
  2. VITAMIN B12 [Concomitant]
     Active Substance: CYANOCOBALAMIN
     Indication: Anaemia
     Dosage: 1-0-0
     Route: 048
  3. ALLOPURINOL [Suspect]
     Active Substance: ALLOPURINOL
     Indication: Hyperuricaemia
     Dosage: 0-1-0
     Route: 048
  4. ZOLPIDEM TARTRATE [Suspect]
     Active Substance: ZOLPIDEM TARTRATE
     Indication: Insomnia
     Dosage: 0-0-1
     Route: 048
  5. Tulip [Concomitant]
     Indication: Cardiovascular event prophylaxis
     Dosage: 0-0-1
     Route: 048
  6. ASPIRIN [Suspect]
     Active Substance: ASPIRIN
     Indication: Cardiovascular event prophylaxis
     Dosage: 0-1-0
     Route: 048
  7. PENTOXIFYLLINE [Suspect]
     Active Substance: PENTOXIFYLLINE
     Indication: Peripheral arterial occlusive disease
     Dosage: 1-0-1
     Route: 048
  8. POLVERTIC [Concomitant]
     Indication: Dizziness
     Dosage: 1-0-1
     Route: 048
  9. AMLODIPINE BESYLATE\INDAPAMIDE\PERINDOPRIL ARGININE [Suspect]
     Active Substance: AMLODIPINE BESYLATE\INDAPAMIDE\PERINDOPRIL ARGININE
     Indication: Hypertension
     Dosage: 1-0-0, (5+1,25+5) MG
     Route: 048
  10. FOLIC ACID [Concomitant]
     Active Substance: FOLIC ACID
     Indication: Anaemia
     Dosage: 1-0-0
     Route: 048
  11. BISOPROLOL FUMARATE [Suspect]
     Active Substance: BISOPROLOL FUMARATE
     Indication: Myocardial ischaemia
     Dosage: 0-1-0
     Route: 048
  12. SYMGLIC [Concomitant]
     Indication: Type 2 diabetes mellitus
     Dosage: 1-0-0
     Route: 048
  13. ACETAMINOPHEN\TRAMADOL HYDROCHLORIDE [Suspect]
     Active Substance: ACETAMINOPHEN\TRAMADOL HYDROCHLORIDE
     Indication: Analgesic therapy
     Route: 048
  14. SEREVENT DISKUS [Suspect]
     Active Substance: SALMETEROL XINAFOATE
     Indication: Chronic obstructive pulmonary disease
     Dosage: 1-0-1, SEREVENT DYSK
     Route: 048
  15. UPROX [Concomitant]
     Indication: Benign prostatic hyperplasia
     Dosage: 1-0-0
     Route: 048

REACTIONS (5)
  - Blood glucose abnormal [Recovering/Resolving]
  - Fall [Recovering/Resolving]
  - Blood potassium abnormal [Recovering/Resolving]
  - Femoral neck fracture [Recovering/Resolving]
  - Cognitive disorder [Recovering/Resolving]

NARRATIVE: CASE EVENT DATE: 20201006
